FAERS Safety Report 9918503 (Version 3)
Quarter: 2014Q2

REPORT INFORMATION
  Report Type: Spontaneous
  Country: US (occurrence: US)
  Receive Date: 20140224
  Receipt Date: 20140612
  Transmission Date: 20141212
  Serious: No
  Sender: FDA-Public Use
  Company Number: US-BIOGENIDEC-2014BI014681

PATIENT
  Age: 68 Year
  Sex: Female

DRUGS (8)
  1. TECFIDERA [Suspect]
     Indication: MULTIPLE SCLEROSIS
     Route: 048
     Dates: start: 20140128
  2. ALEVE [Concomitant]
  3. AZELASTINE HCL [Concomitant]
  4. BACLOFEN [Concomitant]
  5. CYMBALTA [Concomitant]
  6. PATANOL [Concomitant]
  7. PREMARIN [Concomitant]
  8. SYSTANE BALANCE [Concomitant]

REACTIONS (5)
  - Fatigue [Unknown]
  - Night sweats [Unknown]
  - Chills [Unknown]
  - Myalgia [Unknown]
  - Cold sweat [Unknown]
